FAERS Safety Report 17213281 (Version 2)
Quarter: 2020Q1

REPORT INFORMATION
  Report Type: Spontaneous
  Country: DE (occurrence: DE)
  Receive Date: 20191230
  Receipt Date: 20200320
  Transmission Date: 20200409
  Serious: Yes (Other)
  Sender: FDA-Public Use
  Company Number: PHHY2012DE055113

PATIENT
  Age: 42 Year
  Sex: Female

DRUGS (11)
  1. ENDOXAN LYOPHILISAT [Suspect]
     Active Substance: CYCLOPHOSPHAMIDE
     Indication: PYODERMA GANGRENOSUM
     Dosage: UNK,WITH DEXAMETHASONE PULSE THERAPY (2 CYCLES) CYCLIC
     Route: 065
     Dates: start: 2010
  2. MYCOPHENOLATE MOFETIL. [Suspect]
     Active Substance: MYCOPHENOLATE MOFETIL
     Indication: PYODERMA GANGRENOSUM
     Dosage: 2000 MG, QD
     Route: 065
  3. OXYCODONE [Concomitant]
     Active Substance: OXYCODONE
     Indication: PYODERMA GANGRENOSUM
     Dosage: SYSTEMIC ANALGETIC THERAPY
     Route: 065
     Dates: start: 2010, end: 201201
  4. METHYLPREDNISOLONE. [Concomitant]
     Active Substance: METHYLPREDNISOLONE
     Indication: PYODERMA GANGRENOSUM
     Dosage: 1 MG/KG, UNK
     Route: 065
     Dates: start: 2005
  5. METHYLPREDNISOLONE. [Concomitant]
     Active Substance: METHYLPREDNISOLONE
     Dosage: 1.5 MG/KG,LOWERED THE DOSAGE OF METHYLPREDNISOLONE
     Route: 065
     Dates: start: 2010
  6. AZATHIOPRINE. [Concomitant]
     Active Substance: AZATHIOPRINE
     Dosage: UNK
     Route: 065
     Dates: start: 2010, end: 2010
  7. DEXAMETHASONE. [Suspect]
     Active Substance: DEXAMETHASONE
     Indication: PRODUCT USED FOR UNKNOWN INDICATION
     Dosage: WITH CYCLOPHOSPHAMIDE PULSE THERAPY (2 CYCLES), CYCLIC
     Route: 065
     Dates: start: 2010
  8. AZATHIOPRINE. [Concomitant]
     Active Substance: AZATHIOPRINE
     Indication: PYODERMA GANGRENOSUM
     Dosage: 100 MG, UNK
     Route: 065
     Dates: start: 2005
  9. METHYLPREDNISOLONE. [Concomitant]
     Active Substance: METHYLPREDNISOLONE
     Dosage: 2 MG, DOSE INCREASED
     Route: 065
  10. CICLOSPORIN [Suspect]
     Active Substance: CYCLOSPORINE
     Indication: PYODERMA GANGRENOSUM
     Dosage: UNK
     Route: 065
  11. BETAMETHASONE. [Concomitant]
     Active Substance: BETAMETHASONE
     Indication: PYODERMA GANGRENOSUM
     Route: 061
     Dates: start: 2010

REACTIONS (6)
  - Hypertension [Unknown]
  - Dizziness [Unknown]
  - Nausea [Unknown]
  - Dyspnoea [Unknown]
  - Drug ineffective [Unknown]
  - Product use in unapproved indication [Unknown]
